FAERS Safety Report 7694415-6 (Version None)
Quarter: 2011Q3

REPORT INFORMATION
  Report Type: 
  Country: None (occurrence: None)
  Receive Date: 20110819
  Receipt Date: 20110817
  Transmission Date: 20111222
  Serious: Yes (Death)
  Sender: FDA-Public Use
  Company Number: AU-ABBOTT-11P-008-0847383-00

PATIENT

DRUGS (1)
  1. LUCRIN DEPOT INJECTION [Suspect]
     Indication: PRODUCT USED FOR UNKNOWN INDICATION
     Dosage: 3 MONTHLY

REACTIONS (1)
  - DEATH [None]
